FAERS Safety Report 25467401 (Version 2)
Quarter: 2025Q3

REPORT INFORMATION
  Report Type: Spontaneous
  Country: SA (occurrence: SA)
  Receive Date: 20250623
  Receipt Date: 20250805
  Transmission Date: 20251020
  Serious: Yes (Hospitalization)
  Sender: NOVARTIS
  Company Number: SA-002147023-NVSC2025SA096529

PATIENT
  Age: 14 Year
  Sex: Male

DRUGS (2)
  1. TAFINLAR [Suspect]
     Active Substance: DABRAFENIB MESYLATE
     Indication: Brain neoplasm
     Dosage: 150 MG, BID (150MG IN THE MORNING AND 150MG IN THE NIGHT)
     Route: 065
     Dates: start: 202506
  2. TRAMETINIB [Concomitant]
     Active Substance: TRAMETINIB
     Indication: Product used for unknown indication
     Route: 065
     Dates: start: 202506

REACTIONS (5)
  - Tachycardia [Recovered/Resolved]
  - Pyrexia [Recovered/Resolved]
  - Arthralgia [Recovered/Resolved]
  - Pyrexia [Unknown]
  - Bone pain [Unknown]
